FAERS Safety Report 17068322 (Version 1)
Quarter: 2019Q4

REPORT INFORMATION
  Report Type: Spontaneous
  Country: US (occurrence: US)
  Receive Date: 20191123
  Receipt Date: 20191123
  Transmission Date: 20200122
  Serious: No
  Sender: FDA-Public Use
  Company Number: US-TEVA-2019-US-1141245

PATIENT

DRUGS (1)
  1. KETOCONAZOLE. [Suspect]
     Active Substance: KETOCONAZOLE
     Indication: SKIN EXFOLIATION
     Dosage: KETOCONAZOLE CREAM 2 PERCENT
     Route: 065

REACTIONS (3)
  - Drug hypersensitivity [Unknown]
  - Rash macular [Unknown]
  - Pruritus [Unknown]
